FAERS Safety Report 8578070-9 (Version None)
Quarter: 2012Q3

REPORT INFORMATION
  Report Type: 
  Country: None (occurrence: None)
  Receive Date: 20120808
  Receipt Date: 20120803
  Transmission Date: 20120928
  Serious: Yes (Other)
  Sender: FDA-Public Use
  Company Number: PHHY2012MX009282

PATIENT
  Sex: Female

DRUGS (7)
  1. COMBIVENT [Concomitant]
  2. FORADIL [Suspect]
     Indication: PULMONARY FIBROSIS
     Dosage: 1 DF, UNK
     Dates: start: 20110801
  3. ALBUTEROL SULATE [Concomitant]
  4. BUDESONIDE [Suspect]
     Indication: PULMONARY FIBROSIS
     Dosage: 200 UG
     Dates: start: 20110801
  5. THEOPHYLLINE [Concomitant]
  6. ENALAPRIL MALEATE [Concomitant]
     Dosage: 1 DF, QD
     Dates: start: 20110701
  7. OMEPRAZOLE [Concomitant]
     Dosage: 1 DF, QD
     Dates: start: 20110701

REACTIONS (8)
  - THYROID DISORDER [None]
  - HEPATIC INFECTION [None]
  - ANAEMIA [None]
  - GENERAL PHYSICAL HEALTH DETERIORATION [None]
  - GASTROINTESTINAL DISORDER [None]
  - FEELING OF BODY TEMPERATURE CHANGE [None]
  - UNEVALUABLE EVENT [None]
  - BACK PAIN [None]
